FAERS Safety Report 4828564-4 (Version None)
Quarter: 2005Q4

REPORT INFORMATION
  Report Type: 
  Country: None (occurrence: None)
  Receive Date: 20051110
  Receipt Date: 20051101
  Transmission Date: 20060501
  Serious: Yes (Hospitalization)
  Sender: FDA-Public Use
  Company Number: 2005AL004244

PATIENT
  Age: 52 Year
  Sex: Female

DRUGS (8)
  1. SERAX [Suspect]
     Dosage: SEE IMAGE
     Route: 048
     Dates: start: 20040827, end: 20040907
  2. SERAX [Suspect]
     Dosage: SEE IMAGE
     Route: 048
     Dates: start: 20040908, end: 20040909
  3. SERAX [Suspect]
     Dosage: SEE IMAGE
     Route: 048
     Dates: start: 20040910, end: 20040917
  4. SERAX [Suspect]
     Dosage: SEE IMAGE
     Route: 048
     Dates: start: 20040918, end: 20040924
  5. MIRTAZAPINE ({NULL}) [Suspect]
     Dosage: SEE IMAGE
     Route: 048
     Dates: start: 20040831, end: 20040907
  6. MIRTAZAPINE ({NULL}) [Suspect]
     Dosage: SEE IMAGE
     Route: 048
     Dates: start: 20040908, end: 20040908
  7. MIRTAZAPINE ({NULL}) [Suspect]
     Dosage: SEE IMAGE
     Route: 048
     Dates: start: 20040909
  8. VALPROATE SODIUM [Concomitant]

REACTIONS (2)
  - CONSTIPATION [None]
  - URINARY RETENTION [None]
